FAERS Safety Report 9143544 (Version 9)
Quarter: 2013Q3

REPORT INFORMATION
  Report Type: Report from Study
  Country: US (occurrence: US)
  Receive Date: 20130306
  Receipt Date: 20130809
  Transmission Date: 20140515
  Serious: Yes (Other)
  Sender: FDA-Public Use
  Company Number: US-VERTEX PHARMACEUTICALS INC.-2013-003027

PATIENT
  Age: 60 Year
  Sex: Male
  Weight: 73 kg

DRUGS (6)
  1. VX-950 (TELAPREVIR) [Suspect]
     Indication: HEPATITIS C
     Dosage: 750 MG, TID
     Route: 048
     Dates: start: 20130222, end: 201305
  2. PEGASYS [Suspect]
     Indication: HEPATITIS C
     Dosage: 180 ?G
     Route: 058
     Dates: start: 20130222
  3. RIBAVIRIN [Suspect]
     Indication: HEPATITIS C
     Dosage: 1000 MG, QD
     Route: 048
     Dates: start: 20130222, end: 201305
  4. RIBAVIRIN [Suspect]
     Dosage: 600 MG, QD
     Route: 048
     Dates: start: 201305
  5. FLEXERIL [Concomitant]
     Indication: BACK PAIN
     Dosage: UNK, PRN
     Route: 048
  6. MULTIVITAMINS, PLAIN [Concomitant]
     Indication: MEDICAL DIET
     Dosage: 1 UNK, QD
     Route: 048

REACTIONS (29)
  - Convulsion [Unknown]
  - Haemoglobin decreased [Recovered/Resolved]
  - Gastrooesophageal reflux disease [Recovered/Resolved]
  - Urinary incontinence [Unknown]
  - Dizziness exertional [Recovered/Resolved]
  - Memory impairment [Not Recovered/Not Resolved]
  - Insomnia [Not Recovered/Not Resolved]
  - Stress [Not Recovered/Not Resolved]
  - Eating disorder symptom [Not Recovered/Not Resolved]
  - Abdominal pain [Recovered/Resolved]
  - Weight decreased [Not Recovered/Not Resolved]
  - Oral pain [Not Recovered/Not Resolved]
  - Hypoaesthesia [Recovered/Resolved]
  - Chest pain [Recovered/Resolved]
  - Dyspepsia [Recovered/Resolved]
  - Dyspnoea [Not Recovered/Not Resolved]
  - Blood test abnormal [Unknown]
  - Abdominal tenderness [Recovered/Resolved]
  - Incorrect dose administered [Recovered/Resolved]
  - Loss of consciousness [Unknown]
  - Rash papular [Not Recovered/Not Resolved]
  - Urticaria [Recovered/Resolved]
  - Erythema [Recovered/Resolved]
  - Proctalgia [Not Recovered/Not Resolved]
  - Haemorrhoids [Not Recovered/Not Resolved]
  - Pruritus generalised [Not Recovered/Not Resolved]
  - Anorectal discomfort [Not Recovered/Not Resolved]
  - Anal pruritus [Not Recovered/Not Resolved]
  - Diarrhoea [Not Recovered/Not Resolved]
